FAERS Safety Report 19832464 (Version 1)
Quarter: 2021Q3

REPORT INFORMATION
  Report Type: Spontaneous
  Country: US (occurrence: US)
  Receive Date: 20210915
  Receipt Date: 20210915
  Transmission Date: 20211014
  Serious: Yes (Death)
  Sender: FDA-Public Use
  Company Number: None

PATIENT
  Age: 83 Year
  Sex: Male

DRUGS (1)
  1. ENOXAPARIN [Suspect]
     Active Substance: ENOXAPARIN

REACTIONS (4)
  - Vertebrobasilar insufficiency [None]
  - Seizure [None]
  - Subdural haematoma [None]
  - Hemiparesis [None]

NARRATIVE: CASE EVENT DATE: 20210414
